FAERS Safety Report 4671182-1 (Version None)
Quarter: 2005Q2

REPORT INFORMATION
  Report Type: 
  Country: None (occurrence: None)
  Receive Date: 20050523
  Receipt Date: 20050511
  Transmission Date: 20051028
  Serious: Yes (Other)
  Sender: FDA-Public Use
  Company Number: 2005-05-0633

PATIENT
  Age: 58 Year
  Sex: Female

DRUGS (4)
  1. INTRON A [Suspect]
     Indication: HEPATITIS C
     Dosage: 3 MIU TIW INTRAMUSCULAR
     Route: 030
     Dates: start: 20050504
  2. URSO [Concomitant]
  3. LIVACT (ISOLEUCINE/LEUCINE/VALINE) GRANULES [Concomitant]
  4. LASIX [Concomitant]

REACTIONS (1)
  - THROMBOCYTHAEMIA [None]
